FAERS Safety Report 12625987 (Version 1)
Quarter: 2016Q3

REPORT INFORMATION
  Report Type: Report from Study
  Country: US (occurrence: US)
  Receive Date: 20160805
  Receipt Date: 20160805
  Transmission Date: 20161109
  Serious: Yes (Other)
  Sender: FDA-Public Use
  Company Number: US-BAYER-2016-088506

PATIENT
  Age: 56 Year
  Sex: Male
  Weight: 100 kg

DRUGS (5)
  1. LORATADINE. [Concomitant]
     Active Substance: LORATADINE
  2. STIVARGA [Suspect]
     Active Substance: REGORAFENIB
     Indication: COLON CANCER
     Dosage: 80 MG, DAILYX 21 DAYS
     Route: 048
     Dates: start: 20160426
  3. OMEPRAZOLE. [Concomitant]
     Active Substance: OMEPRAZOLE
  4. PROMETHAZINE [Concomitant]
     Active Substance: PROMETHAZINE\PROMETHAZINE HYDROCHLORIDE
  5. MEGESTROL [Concomitant]
     Active Substance: MEGESTROL

REACTIONS (9)
  - Dyspnoea [Unknown]
  - Fatigue [Unknown]
  - Weight decreased [Recovering/Resolving]
  - Nausea [Recovering/Resolving]
  - Haemoglobin decreased [Not Recovered/Not Resolved]
  - Bedridden [Recovering/Resolving]
  - Alopecia [Not Recovered/Not Resolved]
  - Decreased appetite [Recovering/Resolving]
  - Unevaluable event [Recovering/Resolving]

NARRATIVE: CASE EVENT DATE: 201604
